FAERS Safety Report 22178558 (Version 8)
Quarter: 2024Q1

REPORT INFORMATION
  Report Type: Spontaneous
  Country: US (occurrence: US)
  Receive Date: 20230405
  Receipt Date: 20240222
  Transmission Date: 20240409
  Serious: Yes (Other)
  Sender: FDA-Public Use
  Company Number: US-KARYOPHARM-2023KPT000596

PATIENT

DRUGS (19)
  1. XPOVIO [Suspect]
     Active Substance: SELINEXOR
     Indication: Plasma cell myeloma
     Dosage: 60 MG, WEEKLY
     Route: 048
     Dates: start: 20230114, end: 2023
  2. XPOVIO [Suspect]
     Active Substance: SELINEXOR
     Dosage: 80 MG, WEEKLY
     Route: 048
     Dates: start: 202306, end: 202307
  3. XPOVIO [Suspect]
     Active Substance: SELINEXOR
     Dosage: 80 MG, WEEKLY
     Route: 048
     Dates: start: 202308, end: 2024
  4. ACYCLOVIR [Concomitant]
     Active Substance: ACYCLOVIR
  5. ALBUTEROL SULFATE [Concomitant]
     Active Substance: ALBUTEROL SULFATE
  6. ATENOLOL [Concomitant]
     Active Substance: ATENOLOL
  7. BENZONATATE [Concomitant]
     Active Substance: BENZONATATE
  8. CEFPODOXIME [Concomitant]
     Active Substance: CEFPODOXIME
  9. DECADRON [Concomitant]
     Active Substance: DEXAMETHASONE
  10. ESCITALOPRAM [Concomitant]
     Active Substance: ESCITALOPRAM OXALATE
  11. PRAVASTATIN [Concomitant]
     Active Substance: PRAVASTATIN
  12. COMPAZINE [Concomitant]
     Active Substance: PROCHLORPERAZINE MALEATE
  13. ULTRACET [Concomitant]
     Active Substance: ACETAMINOPHEN\TRAMADOL HYDROCHLORIDE
  14. ZOMETA [Concomitant]
     Active Substance: ZOLEDRONIC ACID
  15. ZOFRAN [Concomitant]
     Active Substance: ONDANSETRON HYDROCHLORIDE
  16. REVLIMID [Concomitant]
     Active Substance: LENALIDOMIDE
  17. POMALYST [Concomitant]
     Active Substance: POMALIDOMIDE
  18. MONTELUKAST SODIUM [Concomitant]
     Active Substance: MONTELUKAST SODIUM
  19. PAXLOVID [Concomitant]
     Active Substance: NIRMATRELVIR\RITONAVIR

REACTIONS (11)
  - Fall [Unknown]
  - Craniofacial fracture [Unknown]
  - Taste disorder [Not Recovered/Not Resolved]
  - Ageusia [Unknown]
  - Viral infection [Unknown]
  - Dysgeusia [Not Recovered/Not Resolved]
  - Balance disorder [Unknown]
  - Hypersomnia [Not Recovered/Not Resolved]
  - Quality of life decreased [Unknown]
  - Diarrhoea [Unknown]
  - Fatigue [Unknown]

NARRATIVE: CASE EVENT DATE: 20230101
